FAERS Safety Report 6786087-X (Version None)
Quarter: 2010Q2

REPORT INFORMATION
  Report Type: 
  Country: None (occurrence: None)
  Receive Date: 20100623
  Receipt Date: 20100617
  Transmission Date: 20101027
  Serious: Yes (Other)
  Sender: FDA-Public Use
  Company Number: FR-RB-011731-10

PATIENT
  Age: 29 Year
  Sex: Female

DRUGS (1)
  1. SUBUTEX [Suspect]
     Indication: DRUG USE FOR UNKNOWN INDICATION
     Route: 060
     Dates: start: 20080401

REACTIONS (3)
  - AMNIORRHOEA [None]
  - DRUG EXPOSURE DURING PREGNANCY [None]
  - UTERINE SPASM [None]
